FAERS Safety Report 17629190 (Version 16)
Quarter: 2021Q4

REPORT INFORMATION
  Report Type: Other
  Country: PA (occurrence: PA)
  Receive Date: 20200406
  Receipt Date: 20211129
  Transmission Date: 20220303
  Serious: Yes (Other)
  Sender: FDA-Public Use
  Company Number: PA-002147023-NVSC2020PA068831

PATIENT
  Age: 13 Year
  Sex: Female
  Weight: 67 kg

DRUGS (14)
  1. XOLAIR [Suspect]
     Active Substance: OMALIZUMAB
     Indication: Asthma
     Route: 058
     Dates: start: 20191203
  2. XOLAIR [Suspect]
     Active Substance: OMALIZUMAB
     Route: 058
     Dates: start: 20191231
  3. XOLAIR [Suspect]
     Active Substance: OMALIZUMAB
     Route: 058
     Dates: start: 202101
  4. XOLAIR [Suspect]
     Active Substance: OMALIZUMAB
     Route: 058
     Dates: start: 20210209
  5. XOLAIR [Suspect]
     Active Substance: OMALIZUMAB
     Route: 065
     Dates: start: 202103
  6. XOLAIR [Suspect]
     Active Substance: OMALIZUMAB
     Route: 065
     Dates: start: 20181203
  7. XOLAIR [Suspect]
     Active Substance: OMALIZUMAB
     Route: 065
     Dates: start: 20211116
  8. PREDNISOLONE [Suspect]
     Active Substance: PREDNISOLONE
     Indication: Cough
     Route: 065
  9. PREDNISOLONE [Suspect]
     Active Substance: PREDNISOLONE
     Indication: Weight increased
     Route: 065
  10. SYMBICORT [Concomitant]
     Active Substance: BUDESONIDE\FORMOTEROL FUMARATE DIHYDRATE
     Dosage: 2 PUFF IN THE NIGHT AND MORNING
  11. PREDNISONE [Concomitant]
     Active Substance: PREDNISONE
     Indication: Product used for unknown indication
     Route: 065
     Dates: start: 20210207
  12. MONTELUKAST SODIUM [Concomitant]
     Active Substance: MONTELUKAST SODIUM
     Indication: Asthma
     Dosage: 5 MG, QD?DRUG REPORTED AS EVEREST
     Route: 065
  13. SERETIDE [Concomitant]
     Active Substance: FLUTICASONE PROPIONATE\SALMETEROL XINAFOATE
     Indication: Asthma
     Dosage: PUFF
     Route: 065
     Dates: start: 2014
  14. MOMETASONE [Concomitant]
     Active Substance: MOMETASONE
     Indication: Product used for unknown indication
     Route: 065

REACTIONS (35)
  - Pyrexia [Not Recovered/Not Resolved]
  - Respiratory rate decreased [Recovering/Resolving]
  - Drooling [Not Recovered/Not Resolved]
  - Asphyxia [Not Recovered/Not Resolved]
  - Mouth swelling [Not Recovered/Not Resolved]
  - Pain in extremity [Not Recovered/Not Resolved]
  - Thirst [Not Recovered/Not Resolved]
  - Crying [Not Recovered/Not Resolved]
  - Swelling [Not Recovered/Not Resolved]
  - Chest discomfort [Not Recovered/Not Resolved]
  - Asthmatic crisis [Recovering/Resolving]
  - Headache [Not Recovered/Not Resolved]
  - Hypersensitivity [Unknown]
  - Asthma [Not Recovered/Not Resolved]
  - Peripheral swelling [Not Recovered/Not Resolved]
  - Nasopharyngitis [Recovering/Resolving]
  - Agitation [Recovering/Resolving]
  - Thermal burn [Recovered/Resolved]
  - Sneezing [Not Recovered/Not Resolved]
  - Rhinitis [Recovering/Resolving]
  - Malaise [Recovering/Resolving]
  - Fall [Unknown]
  - Respiratory disorder [Not Recovered/Not Resolved]
  - Acne [Recovering/Resolving]
  - Wheezing [Recovering/Resolving]
  - Nasal congestion [Recovering/Resolving]
  - Cough [Recovering/Resolving]
  - Weight increased [Recovering/Resolving]
  - Application site hypersensitivity [Recovered/Resolved]
  - Application site swelling [Recovering/Resolving]
  - Contusion [Recovered/Resolved]
  - Application site pain [Recovering/Resolving]
  - Urticaria [Not Recovered/Not Resolved]
  - Medication error [Unknown]
  - Product availability issue [Unknown]

NARRATIVE: CASE EVENT DATE: 20200218
